FAERS Safety Report 16912227 (Version 2)
Quarter: 2019Q4

REPORT INFORMATION
  Report Type: Spontaneous
  Country: DE (occurrence: DE)
  Receive Date: 20191014
  Receipt Date: 20191018
  Transmission Date: 20200122
  Serious: Yes (Death, Other)
  Sender: FDA-Public Use
  Company Number: DE-BRISTOL-MYERS SQUIBB COMPANY-BMS-2019-098529

PATIENT
  Sex: Male

DRUGS (1)
  1. NIVOLUMAB [Suspect]
     Active Substance: NIVOLUMAB
     Indication: MALIGNANT MELANOMA
     Dosage: UNK
     Route: 065
     Dates: start: 201807

REACTIONS (7)
  - Depression [Unknown]
  - Acute kidney injury [Unknown]
  - Pyrexia [Unknown]
  - Blood creatine phosphokinase MB increased [Unknown]
  - Cardiac arrest [Fatal]
  - Autoimmune hepatitis [Unknown]
  - Troponin T increased [Unknown]
